FAERS Safety Report 4749655-2 (Version None)
Quarter: 2005Q3

REPORT INFORMATION
  Report Type: 
  Country: None (occurrence: None)
  Receive Date: 20050819
  Receipt Date: 20050819
  Transmission Date: 20060218
  Serious: Yes (Other)
  Sender: FDA-Public Use
  Company Number: None

PATIENT
  Age: 66 Year
  Sex: Female
  Weight: 58.9676 kg

DRUGS (2)
  1. ZETIA [Suspect]
     Indication: BLOOD CHOLESTEROL INCREASED
     Dosage: 1 PILL PER DAY
     Dates: start: 20040201, end: 20040615
  2. ZETIA [Suspect]
     Indication: DRUG HYPERSENSITIVITY
     Dosage: 1 PILL PER DAY
     Dates: start: 20040201, end: 20040615

REACTIONS (5)
  - ASTHENIA [None]
  - FATIGUE [None]
  - HYPERSOMNIA [None]
  - LETHARGY [None]
  - MYALGIA [None]
